FAERS Safety Report 24832438 (Version 1)
Quarter: 2025Q1

REPORT INFORMATION
  Report Type: Spontaneous
  Country: US (occurrence: None)
  Receive Date: 20250110
  Receipt Date: 20250110
  Transmission Date: 20250409
  Serious: Yes (Hospitalization, Disabling)
  Sender: FDA-CTU
  Company Number: None

PATIENT
  Age: 50 Year
  Sex: Female
  Weight: 102.51 kg

DRUGS (32)
  1. AZULFIDINE [Suspect]
     Active Substance: SULFASALAZINE
  2. SULFASALAZINE [Suspect]
     Active Substance: SULFASALAZINE
  3. RINVOQ [Suspect]
     Active Substance: UPADACITINIB
  4. NALTREXONE [Suspect]
     Active Substance: NALTREXONE
  5. FAMOTIDINE [Concomitant]
     Active Substance: FAMOTIDINE
  6. GABAPENTIN [Concomitant]
     Active Substance: GABAPENTIN
  7. METFORMIN [Concomitant]
     Active Substance: METFORMIN HYDROCHLORIDE
  8. HYDROCHLOROTHIAZIDE\IRBESARTAN [Concomitant]
     Active Substance: HYDROCHLOROTHIAZIDE\IRBESARTAN
  9. NAPROXEN [Concomitant]
     Active Substance: NAPROXEN
  10. NEBIVOLOL [Concomitant]
     Active Substance: NEBIVOLOL
  11. SERTRALINE [Concomitant]
     Active Substance: SERTRALINE HYDROCHLORIDE
  12. TIZANIDINE [Concomitant]
     Active Substance: TIZANIDINE
  13. TRAMADOL [Concomitant]
     Active Substance: TRAMADOL
  14. ALPRAZOLAM [Concomitant]
     Active Substance: ALPRAZOLAM
  15. ERGOCALCIFEROL [Concomitant]
     Active Substance: ERGOCALCIFEROL
  16. NARCAN [Concomitant]
     Active Substance: NALOXONE HYDROCHLORIDE
  17. CHLORZOXAZONE [Concomitant]
     Active Substance: CHLORZOXAZONE
  18. Cyclobemaprine [Concomitant]
  19. DILTIAZEM [Concomitant]
     Active Substance: DILTIAZEM
  20. IBUPROFEN [Concomitant]
     Active Substance: IBUPROFEN
  21. NORETHINDRONE [Concomitant]
     Active Substance: NORETHINDRONE
  22. OMEPRAZOLE [Concomitant]
     Active Substance: OMEPRAZOLE
  23. PROBIOTICS NOS [Concomitant]
     Active Substance: PROBIOTICS NOS
  24. NURTEC ODT [Concomitant]
     Active Substance: RIMEGEPANT SULFATE
  25. VITAMIN C [Concomitant]
     Active Substance: ASCORBIC ACID
  26. FERROUS GLUCONATE [Concomitant]
     Active Substance: FERROUS GLUCONATE
  27. NALTREXONE [Concomitant]
     Active Substance: NALTREXONE
  28. CYMBALTA [Concomitant]
     Active Substance: DULOXETINE HYDROCHLORIDE
  29. SULFASALAZINE [Concomitant]
     Active Substance: SULFASALAZINE
  30. TERCONAZOLE [Concomitant]
     Active Substance: TERCONAZOLE
  31. ESCITALOPRAM [Concomitant]
     Active Substance: ESCITALOPRAM OXALATE
  32. CLOTRIMAZOLE AND BETAMETHASONE DIPROPIONATE [Concomitant]
     Active Substance: BETAMETHASONE\BETAMETHASONE DIPROPIONATE\CLOTRIMAZOLE

REACTIONS (10)
  - Eye injury [None]
  - Retinal detachment [None]
  - Cardiovascular disorder [None]
  - Thrombosis [None]
  - Blood creatine phosphokinase [None]
  - Nonspecific reaction [None]
  - Vomiting [None]
  - Impaired gastric emptying [None]
  - Large intestine perforation [None]
  - Gastric haemorrhage [None]

NARRATIVE: CASE EVENT DATE: 20241029
